FAERS Safety Report 9776855 (Version 3)
Quarter: 2014Q2

REPORT INFORMATION
  Report Type: Spontaneous
  Country: US (occurrence: US)
  Receive Date: 20131221
  Receipt Date: 20140603
  Transmission Date: 20141212
  Serious: No
  Sender: FDA-Public Use
  Company Number: US-B.I. PHARMACEUTICALS,INC./RIDGEFIELD-2013-BI-41342BP

PATIENT
  Sex: Female

DRUGS (4)
  1. COMBIVENT [Suspect]
     Indication: CHRONIC OBSTRUCTIVE PULMONARY DISEASE
     Dosage: STRENGTH: 20 MCG / 100 MCG; DAILY DOSE: 80 MCG / 400 MCG
     Route: 055
     Dates: start: 20130821
  2. FLUTICASONE NASAL [Concomitant]
     Dosage: ROUTE: NASAL
     Route: 050
  3. ADVAIR HFA [Concomitant]
     Route: 065
  4. ALBUTEROL HFA [Concomitant]
     Route: 065

REACTIONS (4)
  - Cough [Not Recovered/Not Resolved]
  - Cough [Recovered/Resolved]
  - Product quality issue [Recovered/Resolved]
  - Product quality issue [Recovered/Resolved]
